FAERS Safety Report 17284171 (Version 1)
Quarter: 2020Q1

REPORT INFORMATION
  Report Type: Report from Study
  Country: CA (occurrence: CA)
  Receive Date: 20200117
  Receipt Date: 20200117
  Transmission Date: 20200409
  Serious: Yes (Other)
  Sender: FDA-Public Use
  Company Number: CA-JNJFOC-20191138786

PATIENT
  Age: 76 Year
  Sex: Male
  Weight: 88.2 kg

DRUGS (2)
  1. REMICADE [Suspect]
     Active Substance: INFLIXIMAB
     Indication: COLITIS ULCERATIVE
     Route: 042
  2. BUDESONIDE. [Suspect]
     Active Substance: BUDESONIDE
     Indication: PRODUCT USED FOR UNKNOWN INDICATION
     Route: 065
     Dates: start: 201910, end: 20200108

REACTIONS (3)
  - Diabetes mellitus [Unknown]
  - Oral candidiasis [Unknown]
  - Pneumonia [Unknown]

NARRATIVE: CASE EVENT DATE: 201911
